FAERS Safety Report 6675269-3 (Version None)
Quarter: 2010Q2

REPORT INFORMATION
  Report Type: 
  Country: None (occurrence: None)
  Receive Date: 20100409
  Receipt Date: 20091223
  Transmission Date: 20101027
  Serious: No
  Sender: FDA-Public Use
  Company Number: A0836719A

PATIENT
  Age: 59 Year
  Sex: Female

DRUGS (4)
  1. TYKERB [Suspect]
     Indication: BREAST CANCER
     Dosage: 4TAB PER DAY
     Route: 048
     Dates: start: 20091206
  2. HERCEPTIN [Concomitant]
  3. AREDIA [Concomitant]
  4. LITHIUM CARBONATE [Concomitant]

REACTIONS (2)
  - DIARRHOEA [None]
  - NAUSEA [None]
